FAERS Safety Report 19995290 (Version 1)
Quarter: 2021Q4

REPORT INFORMATION
  Report Type: Spontaneous
  Country: US (occurrence: US)
  Receive Date: 20211026
  Receipt Date: 20211026
  Transmission Date: 20220303
  Serious: Yes (unspecified)
  Sender: FDA-Public Use
  Company Number: None

PATIENT
  Age: 42 Year
  Sex: Female

DRUGS (1)
  1. REGEN-COV [Suspect]
     Active Substance: CASIRIVIMAB\IMDEVIMAB
     Indication: COVID-19
     Dosage: ?          OTHER FREQUENCY:ONCE;
     Route: 042
     Dates: start: 20211025, end: 20211025

REACTIONS (5)
  - Dizziness [None]
  - Nausea [None]
  - Vomiting [None]
  - Diarrhoea [None]
  - Blood pressure decreased [None]

NARRATIVE: CASE EVENT DATE: 20211025
